FAERS Safety Report 13233265 (Version 1)
Quarter: 2017Q1

REPORT INFORMATION
  Report Type: Spontaneous
  Country: ES (occurrence: ES)
  Receive Date: 20170215
  Receipt Date: 20170215
  Transmission Date: 20170428
  Serious: Yes (Hospitalization, Other)
  Sender: FDA-Public Use
  Company Number: ES-ZYDUS-013853

PATIENT
  Age: 47 Year
  Sex: Male
  Weight: 87 kg

DRUGS (8)
  1. LEVETIRACETAM. [Suspect]
     Active Substance: LEVETIRACETAM
     Indication: SEIZURE
     Route: 065
  2. REMIFENTANIL/REMIFENTANIL HYDROCHLORIDE [Concomitant]
     Indication: SURGERY
     Dosage: 0.025 G/KG/MIN
     Route: 065
  3. VALPROIC ACID. [Suspect]
     Active Substance: VALPROIC ACID
     Indication: SEIZURE
     Dosage: 1000MG-500MG-500MG
     Route: 065
  4. PROPOFOL. [Concomitant]
     Active Substance: PROPOFOL
     Indication: SURGERY
     Route: 065
  5. CLOBAZAM [Concomitant]
     Active Substance: CLOBAZAM
     Indication: SEIZURE
     Route: 065
  6. PROPOFOL. [Concomitant]
     Active Substance: PROPOFOL
     Indication: SURGERY
     Route: 065
  7. BUPIVACAINE. [Concomitant]
     Active Substance: BUPIVACAINE
     Indication: SURGERY
     Route: 065
  8. CISATRACURIUM/CISATRACURIUM BESILATE [Concomitant]
     Indication: SURGERY
     Route: 065

REACTIONS (8)
  - Aphasia [Unknown]
  - Bradyphrenia [Recovered/Resolved]
  - Asterixis [Recovered/Resolved]
  - Hyperammonaemic encephalopathy [Unknown]
  - Memory impairment [Unknown]
  - Fatigue [Recovered/Resolved]
  - Speech disorder [Unknown]
  - Ammonia increased [Recovered/Resolved]
